FAERS Safety Report 15120453 (Version 1)
Quarter: 2018Q3

REPORT INFORMATION
  Report Type: Spontaneous
  Country: US (occurrence: US)
  Receive Date: 20180709
  Receipt Date: 20180709
  Transmission Date: 20181010
  Serious: No
  Sender: FDA-Public Use
  Company Number: US-UNITED THERAPEUTICS-UNT-2018-003872

PATIENT
  Age: 47 Year
  Sex: Female
  Weight: 92.52 kg

DRUGS (2)
  1. REMODULIN [Suspect]
     Active Substance: TREPROSTINIL
     Indication: PULMONARY ARTERIAL HYPERTENSION
     Dosage: 0.04 ?G/KG, CONTINUING
     Route: 058
     Dates: start: 20170224
  2. REMODULIN [Suspect]
     Active Substance: TREPROSTINIL
     Dosage: UNK
     Route: 058

REACTIONS (7)
  - Infusion site pain [Unknown]
  - Infusion site nodule [Not Recovered/Not Resolved]
  - Infusion site erythema [Unknown]
  - Infusion site induration [Unknown]
  - Infusion site discharge [Unknown]
  - Infusion site swelling [Unknown]
  - Infusion site macule [Recovered/Resolved]

NARRATIVE: CASE EVENT DATE: 20180629
